FAERS Safety Report 11170450 (Version 1)
Quarter: 2015Q2

REPORT INFORMATION
  Report Type: Spontaneous
  Country: US (occurrence: US)
  Receive Date: 20150608
  Receipt Date: 20150608
  Transmission Date: 20150821
  Serious: Yes (Death, Life-Threatening)
  Sender: FDA-Public Use
  Company Number: US-CELGENE-USA-2015015009

PATIENT
  Age: 58 Year
  Sex: Female

DRUGS (4)
  1. REVLIMID [Suspect]
     Active Substance: LENALIDOMIDE
     Indication: LYMPHOMA
     Dosage: 25 MILLIGRAM
     Route: 048
     Dates: start: 20150109, end: 20150113
  2. IFOSFAMIDE. [Suspect]
     Active Substance: IFOSFAMIDE
     Indication: LYMPHOMA
     Route: 041
     Dates: start: 20150109, end: 20150110
  3. ETOPOSIDE. [Suspect]
     Active Substance: ETOPOSIDE
     Indication: LYMPHOMA
     Route: 041
     Dates: start: 20150108, end: 20150110
  4. CARBOPLATIN. [Suspect]
     Active Substance: CARBOPLATIN
     Indication: LYMPHOMA
     Route: 041
     Dates: start: 20150109, end: 20150109

REACTIONS (4)
  - Death [Fatal]
  - Red blood cell count decreased [Unknown]
  - White blood cell count decreased [Unknown]
  - Lymphoma [Unknown]

NARRATIVE: CASE EVENT DATE: 20150122
